FAERS Safety Report 21840666 (Version 3)
Quarter: 2023Q1

REPORT INFORMATION
  Report Type: Report from Study
  Country: US (occurrence: US)
  Receive Date: 20230110
  Receipt Date: 20230323
  Transmission Date: 20230418
  Serious: Yes (Other)
  Sender: FDA-Public Use
  Company Number: US-ABBVIE-4236618

PATIENT
  Sex: Male

DRUGS (1)
  1. HUMIRA [Suspect]
     Active Substance: ADALIMUMAB
     Indication: Rheumatoid arthritis
     Route: 058

REACTIONS (6)
  - Chondropathy [Unknown]
  - Arthralgia [Not Recovered/Not Resolved]
  - Complication associated with device [Unknown]
  - Mycobacterium tuberculosis complex test positive [Unknown]
  - Arterial stiffness [Unknown]
  - Osteoarthritis [Not Recovered/Not Resolved]
